FAERS Safety Report 7978332 (Version 3)
Quarter: 2013Q2

REPORT INFORMATION
  Report Type: Spontaneous
  Country: US (occurrence: US)
  Receive Date: 20110607
  Receipt Date: 20130415
  Transmission Date: 20140414
  Serious: Yes (Other)
  Sender: FDA-Public Use
  Company Number: US-ROCHE-780866

PATIENT
  Sex: Female
  Weight: 52.2 kg

DRUGS (2)
  1. ACCUTANE [Suspect]
     Indication: ACNE
     Route: 065
  2. ACCUTANE [Suspect]
     Route: 065
     Dates: start: 200009, end: 200107

REACTIONS (6)
  - Irritable bowel syndrome [Unknown]
  - Peritonitis [Unknown]
  - Cystitis interstitial [Unknown]
  - Selective IgA immunodeficiency [Unknown]
  - Depression [Not Recovered/Not Resolved]
  - Injury [Unknown]
